FAERS Safety Report 12903172 (Version 1)
Quarter: 2016Q4

REPORT INFORMATION
  Report Type: Report from Study
  Country: CA (occurrence: CA)
  Receive Date: 20161102
  Receipt Date: 20161102
  Transmission Date: 20170207
  Serious: Yes (Other)
  Sender: FDA-Public Use
  Company Number: CA-AMGEN-CANSL2016149437

PATIENT
  Age: 81 Year
  Sex: Female
  Weight: 84 kg

DRUGS (9)
  1. CLOPIDOGREL [Concomitant]
     Active Substance: CLOPIDOGREL BISULFATE
     Dosage: 75 MG, QD
  2. ENBREL [Suspect]
     Active Substance: ETANERCEPT
     Indication: RHEUMATOID ARTHRITIS
     Dosage: 50 MG, QWK
     Route: 058
     Dates: start: 20040707
  3. ESCITALOPRAM [Concomitant]
     Active Substance: ESCITALOPRAM OXALATE
     Dosage: 10 MG, QD
  4. LEVOTHYROXIN [Concomitant]
     Active Substance: LEVOTHYROXINE
     Dosage: 0.05 MG, QD
  5. MIRTAZAPINE. [Concomitant]
     Active Substance: MIRTAZAPINE
     Dosage: 30 MG, QD
  6. ATORVASTATIN [Concomitant]
     Active Substance: ATORVASTATIN
     Dosage: 40 MG, QD
  7. PANTOPRAZOLE [Concomitant]
     Active Substance: PANTOPRAZOLE SODIUM
     Dosage: 40 MG, QD
  8. FOSINOPRIL [Concomitant]
     Active Substance: FOSINOPRIL
     Dosage: 20 MG, QD
  9. VITAMIN D [Concomitant]
     Active Substance: CHOLECALCIFEROL
     Dosage: 2000 IU, QD

REACTIONS (29)
  - Joint swelling [Unknown]
  - Mobility decreased [Unknown]
  - Blood pressure abnormal [Unknown]
  - Cerebrovascular accident [Recovering/Resolving]
  - Dry mouth [Unknown]
  - Platelet count abnormal [Unknown]
  - Heart rate decreased [Unknown]
  - Oedema peripheral [Unknown]
  - Arthralgia [Unknown]
  - Musculoskeletal stiffness [Unknown]
  - Cough [Unknown]
  - Headache [Unknown]
  - Depression [Unknown]
  - Red blood cell count decreased [Unknown]
  - Diarrhoea [Unknown]
  - Photosensitivity reaction [Unknown]
  - Vision blurred [Unknown]
  - Dry eye [Unknown]
  - C-reactive protein increased [Unknown]
  - Fatigue [Unknown]
  - Abdominal pain [Unknown]
  - Crepitations [Unknown]
  - Nodal osteoarthritis [Unknown]
  - Hemiparesis [Recovering/Resolving]
  - Dyspepsia [Unknown]
  - Constipation [Unknown]
  - Dysuria [Unknown]
  - Ocular hyperaemia [Unknown]
  - Joint contracture [Unknown]

NARRATIVE: CASE EVENT DATE: 2015
